FAERS Safety Report 18315003 (Version 1)
Quarter: 2020Q3

REPORT INFORMATION
  Report Type: Spontaneous
  Country: ID (occurrence: ID)
  Receive Date: 20200925
  Receipt Date: 20200925
  Transmission Date: 20201103
  Serious: Yes (Other)
  Sender: FDA-Public Use
  Company Number: ID-ASTRAZENECA-2020SF22525

PATIENT
  Age: 56 Year
  Sex: Female

DRUGS (1)
  1. GEFITINIB. [Suspect]
     Active Substance: GEFITINIB
     Route: 048
     Dates: start: 20181009

REACTIONS (3)
  - Metastases to bone [Unknown]
  - Spinal osteoarthritis [Unknown]
  - Goitre [Unknown]
